FAERS Safety Report 13368512 (Version 1)
Quarter: 2017Q1

REPORT INFORMATION
  Report Type: Spontaneous
  Country: NO (occurrence: NO)
  Receive Date: 20170324
  Receipt Date: 20170324
  Transmission Date: 20170429
  Serious: Yes (Other)
  Sender: FDA-Public Use
  Company Number: NO-FRESENIUS KABI-FK201702421

PATIENT
  Age: 40 Year
  Sex: Female

DRUGS (10)
  1. DOXORUBICIN (MANUFACTURER UNKNOWN) [Suspect]
     Active Substance: DOXORUBICIN
     Indication: METASTASES TO LIVER
     Route: 065
  2. GEMCITABINE [Suspect]
     Active Substance: GEMCITABINE\GEMCITABINE HYDROCHLORIDE
     Indication: METASTASES TO LUNG
  3. DOCETAXEL (MANUFACTURER UNKNOWN) [Suspect]
     Active Substance: DOCETAXEL
     Indication: METASTASES TO LUNG
  4. GRANULOCYTE-COLONY-STIMULATING-FACTORS [Concomitant]
     Indication: METASTASES TO LIVER
     Route: 065
  5. GEMCITABINE [Suspect]
     Active Substance: GEMCITABINE\GEMCITABINE HYDROCHLORIDE
     Indication: METASTASES TO LIVER
     Route: 065
  6. IFOSFAMIDE. [Concomitant]
     Active Substance: IFOSFAMIDE
     Indication: METASTASES TO LIVER
     Route: 065
  7. DOXORUBICIN (MANUFACTURER UNKNOWN) [Suspect]
     Active Substance: DOXORUBICIN
     Indication: METASTASES TO LUNG
  8. DOCETAXEL (MANUFACTURER UNKNOWN) [Suspect]
     Active Substance: DOCETAXEL
     Indication: METASTASES TO LIVER
     Route: 065
  9. IFOSFAMIDE. [Concomitant]
     Active Substance: IFOSFAMIDE
     Indication: METASTASES TO LUNG
  10. GRANULOCYTE-COLONY-STIMULATING-FACTORS [Concomitant]
     Indication: METASTASES TO LUNG

REACTIONS (2)
  - Myalgia [Recovered/Resolved]
  - Fluid retention [Recovered/Resolved]
